FAERS Safety Report 16066035 (Version 1)
Quarter: 2019Q1

REPORT INFORMATION
  Report Type: Spontaneous
  Country: FR (occurrence: FR)
  Receive Date: 20190313
  Receipt Date: 20190313
  Transmission Date: 20190418
  Serious: Yes (Life-Threatening)
  Sender: FDA-Public Use
  Company Number: FR-ACCORD-112262

PATIENT
  Age: 82 Year
  Sex: Female
  Weight: 80 kg

DRUGS (6)
  1. FUROSEMIDE. [Suspect]
     Active Substance: FUROSEMIDE
     Indication: VENTRICULAR DYSFUNCTION
     Route: 048
     Dates: end: 20180923
  2. PREVISCAN (FLUINDIONE) [Suspect]
     Active Substance: FLUINDIONE
     Indication: ATRIAL FIBRILLATION
     Dosage: STRENGTH:20 MG, SCORED TABLET
     Route: 048
     Dates: end: 20180923
  3. BISOPROLOL [Suspect]
     Active Substance: BISOPROLOL
     Indication: VENTRICULAR DYSFUNCTION
     Route: 048
     Dates: end: 20180923
  4. IBUFETUM [Suspect]
     Active Substance: IBUPROFEN
     Indication: PAIN
     Dosage: STRENGTH: 5%
     Route: 003
     Dates: end: 20180923
  5. AMIODARONE [Concomitant]
     Active Substance: AMIODARONE
  6. LEVOTHYROXINE. [Concomitant]
     Active Substance: LEVOTHYROXINE

REACTIONS (3)
  - Breast haematoma [Recovered/Resolved with Sequelae]
  - Shock haemorrhagic [Recovering/Resolving]
  - Anaemia [Recovering/Resolving]

NARRATIVE: CASE EVENT DATE: 20180923
